FAERS Safety Report 9370226 (Version 1)
Quarter: 2013Q2

REPORT INFORMATION
  Report Type: Spontaneous
  Country: BR (occurrence: BR)
  Receive Date: 20130626
  Receipt Date: 20130626
  Transmission Date: 20140414
  Serious: Yes (Hospitalization, Other)
  Sender: FDA-Public Use
  Company Number: BR-JNJFOC-20130610121

PATIENT
  Age: 26 Year
  Sex: Female

DRUGS (2)
  1. INVEGA SUSTENNA [Suspect]
     Indication: SCHIZOPHRENIA
     Route: 030
     Dates: start: 20120122
  2. ARIPIPRAZOL [Concomitant]
     Indication: AGGRESSION
     Route: 065

REACTIONS (2)
  - Anal abscess [Not Recovered/Not Resolved]
  - Drug abuse [Unknown]
